FAERS Safety Report 10494978 (Version 1)
Quarter: 2014Q3

REPORT INFORMATION
  Report Type: Spontaneous
  Country: US (occurrence: None)
  Receive Date: 20140815
  Receipt Date: 20140815
  Transmission Date: 20150326
  Serious: Yes (Hospitalization, Other)
  Sender: FDA-Public Use
  Company Number: ADR-2014-00995

PATIENT
  Sex: Male

DRUGS (3)
  1. FENTANYL INTRATHECAL [Suspect]
     Active Substance: FENTANYL
  2. COMPOUNDED BACLOFEN INTRATHECAL [Suspect]
     Active Substance: BACLOFEN
     Indication: PAIN
  3. BUPIVACAINE INTRATHECAL [Suspect]
     Active Substance: BUPIVACAINE

REACTIONS (7)
  - Nausea [None]
  - Diarrhoea [None]
  - Vomiting [None]
  - Drug withdrawal syndrome [None]
  - Injury [None]
  - Pain [None]
  - Underdose [None]
